FAERS Safety Report 9604093 (Version 1)
Quarter: 2013Q4

REPORT INFORMATION
  Report Type: Spontaneous
  Country: IT (occurrence: IT)
  Receive Date: 20131008
  Receipt Date: 20131008
  Transmission Date: 20140711
  Serious: Yes (Other)
  Sender: FDA-Public Use
  Company Number: IT-009507513-1310ITA000817

PATIENT
  Age: 63 Year
  Sex: Female
  Weight: 71 kg

DRUGS (2)
  1. VICTRELIS [Suspect]
     Indication: HEPATITIS C
     Dosage: 2400 MG DAILY
     Route: 048
     Dates: start: 20130602, end: 20130909
  2. PEGINTRON [Suspect]
     Indication: HEPATITIS C
     Dosage: 1 DOSE UNIT, UNK
     Route: 058
     Dates: start: 20130505, end: 20130909

REACTIONS (4)
  - Ascites [Unknown]
  - Cough [Unknown]
  - Weight decreased [Unknown]
  - Decreased appetite [Unknown]
